FAERS Safety Report 4430983-5 (Version None)
Quarter: 2004Q3

REPORT INFORMATION
  Report Type: 
  Country: None (occurrence: None)
  Receive Date: 20040824
  Receipt Date: 20040813
  Transmission Date: 20050211
  Serious: Yes (Hospitalization)
  Sender: FDA-Public Use
  Company Number: CH-JNJFOC-20040702973

PATIENT
  Age: 54 Year
  Sex: Female
  Weight: 72 kg

DRUGS (6)
  1. REMICADE [Suspect]
     Route: 042
  2. METHOTREXATE [Concomitant]
     Route: 049
  3. NEORAL [Concomitant]
     Route: 049
  4. FOLIC ACID [Concomitant]
     Dosage: 10 MG/WEEK.
     Route: 049
  5. CALCIUM [Concomitant]
     Route: 049
  6. PONSTAN [Concomitant]
     Route: 049

REACTIONS (5)
  - ANTIPHOSPHOLIPID ANTIBODIES POSITIVE [None]
  - EPILEPSY [None]
  - MYOSITIS [None]
  - PYREXIA [None]
  - VASCULITIS [None]
